FAERS Safety Report 18117934 (Version 1)
Quarter: 2020Q3

REPORT INFORMATION
  Report Type: Spontaneous
  Country: US (occurrence: US)
  Receive Date: 20200804
  Receipt Date: 20200804
  Transmission Date: 20201103
  Serious: No
  Sender: FDA-Public Use
  Company Number: None

PATIENT
  Age: 25 Year
  Sex: Female
  Weight: 70.2 kg

DRUGS (1)
  1. MOXE CITRUS HAND SANITIZER [Suspect]
     Active Substance: ALCOHOL
     Indication: COVID-19 PROPHYLAXIS
     Dosage: ?          QUANTITY:10 PUMP;?
     Route: 061
     Dates: start: 20200603, end: 20200804

REACTIONS (2)
  - Headache [None]
  - Lethargy [None]

NARRATIVE: CASE EVENT DATE: 20200604
